FAERS Safety Report 24035179 (Version 1)
Quarter: 2024Q3

REPORT INFORMATION
  Report Type: Spontaneous
  Country: MY (occurrence: MY)
  Receive Date: 20240701
  Receipt Date: 20240701
  Transmission Date: 20241017
  Serious: Yes (Other)
  Sender: MYLAN
  Company Number: MY-MYLANLABS-2024M1058291

PATIENT
  Age: 28 Year
  Sex: Female

DRUGS (1)
  1. CELEBREX [Suspect]
     Active Substance: CELECOXIB
     Indication: Pain
     Dosage: 200 MILLIGRAM, QD
     Route: 048

REACTIONS (3)
  - Target skin lesion [Recovering/Resolving]
  - Erythema [Recovering/Resolving]
  - Rash maculo-papular [Recovering/Resolving]
